FAERS Safety Report 5578837-5 (Version None)
Quarter: 2007Q4

REPORT INFORMATION
  Report Type: 
  Country: None (occurrence: None)
  Receive Date: 20071228
  Receipt Date: 20071213
  Transmission Date: 20080405
  Serious: Yes (Other)
  Sender: FDA-Public Use
  Company Number: OSCN-PR-0701S-0381

PATIENT
  Sex: Female

DRUGS (6)
  1. OMNISCAN [Suspect]
     Indication: BACK PAIN
     Dosage: 20 ML, SINGLE DOSE, I.V.
     Route: 042
     Dates: start: 20051027, end: 20051027
  2. OMNISCAN [Suspect]
     Indication: CHEST PAIN
     Dosage: 20 ML, SINGLE DOSE, I.V.
     Route: 042
     Dates: start: 20051027, end: 20051027
  3. OMNISCAN [Suspect]
     Indication: MUSCULOSKELETAL PAIN
     Dosage: 20 ML, SINGLE DOSE, I.V.
     Route: 042
     Dates: start: 20051027, end: 20051027
  4. CALCIUM ACETATE (PHOSLO) [Concomitant]
  5. FERROUS SULFATE (IRON) [Concomitant]
  6. EPOGEN [Concomitant]

REACTIONS (1)
  - NEPHROGENIC SYSTEMIC FIBROSIS [None]
